FAERS Safety Report 7097495-4 (Version None)
Quarter: 2010Q4

REPORT INFORMATION
  Report Type: 
  Country: None (occurrence: None)
  Receive Date: 20101111
  Receipt Date: 20101029
  Transmission Date: 20110411
  Serious: Yes (Hospitalization)
  Sender: FDA-Public Use
  Company Number: PHHY2010VE73331

PATIENT
  Sex: Female

DRUGS (6)
  1. ACLASTA [Suspect]
     Indication: OSTEOPOROSIS
     Dosage: 5 MG/YEAR
     Dates: start: 20070801
  2. ACLASTA [Suspect]
     Dosage: 5 MG/YEAR
     Dates: start: 20090430
  3. ACLASTA [Suspect]
     Dosage: 5 MG/YEAR
     Dates: start: 20100528
  4. METHOTREXAT [Concomitant]
     Dosage: 10MG EVERY WEEK SINCE 25 YEARS AGO
  5. CALCIUM [Concomitant]
     Dosage: 3000MG^ ONCE A DAY
  6. MEDROL [Concomitant]
     Dosage: 1/4 TAB ONCE A DAY

REACTIONS (3)
  - DEVICE DISLOCATION [None]
  - NOSOCOMIAL INFECTION [None]
  - SURGERY [None]
